FAERS Safety Report 8338960-9 (Version None)
Quarter: 2012Q2

REPORT INFORMATION
  Report Type: 
  Country: None (occurrence: None)
  Receive Date: 20120507
  Receipt Date: 20120426
  Transmission Date: 20120825
  Serious: Yes (Hospitalization)
  Sender: FDA-Public Use
  Company Number: US-BAYER-2011-122088

PATIENT
  Age: 27 Year
  Sex: Female
  Weight: 67.12 kg

DRUGS (11)
  1. YAZ [Suspect]
     Indication: PREMENSTRUAL SYNDROME
  2. ALBUTEROL [Concomitant]
     Indication: ASTHMA
     Dosage: 90 MCG/24HR, PRN
     Route: 045
     Dates: start: 20020427, end: 20090930
  3. YASMIN [Suspect]
     Indication: ACNE
  4. YAZ [Suspect]
     Indication: ACNE
  5. YASMIN [Suspect]
     Indication: CONTRACEPTION
     Dosage: UNK
     Route: 048
     Dates: start: 20030101, end: 20040101
  6. YAZ [Suspect]
     Indication: CONTRACEPTION
     Dosage: UNK
     Route: 048
     Dates: start: 20070301, end: 20091001
  7. YASMIN [Suspect]
     Indication: PREMENSTRUAL SYNDROME
  8. MIRALAX [Concomitant]
     Dosage: UNK
     Dates: start: 20080121, end: 20090930
  9. ALBUTEROL [Concomitant]
     Dosage: 90 MCG/24HR, UNK
     Route: 045
     Dates: start: 20010101
  10. VENTOLIN [Concomitant]
     Dosage: UNK
     Route: 045
  11. CIPROFLOXACIN [Concomitant]
     Dosage: 250 MG, BID
     Route: 048
     Dates: start: 20090904

REACTIONS (8)
  - PANCREATITIS [None]
  - GENERAL PHYSICAL HEALTH DETERIORATION [None]
  - ABDOMINAL PAIN [None]
  - PAIN [None]
  - MENTAL DISORDER [None]
  - ANXIETY [None]
  - EMOTIONAL DISTRESS [None]
  - CHOLECYSTITIS [None]
